FAERS Safety Report 5170060-1 (Version None)
Quarter: 2006Q4

REPORT INFORMATION
  Report Type: 
  Country: None (occurrence: None)
  Receive Date: 20061201
  Receipt Date: 20061121
  Transmission Date: 20070319
  Serious: Yes (Hospitalization, Other)
  Sender: FDA-Public Use
  Company Number: A-US2006-12724

PATIENT
  Age: 74 Year
  Sex: Female
  Weight: 78.5 kg

DRUGS (8)
  1. TRACLEER [Suspect]
     Indication: PULMONARY HYPERTENSION
     Dosage: SEE IMAGE, ORAL
     Route: 048
     Dates: start: 20060427, end: 20060514
  2. EZETIMIBE [Concomitant]
  3. LEXAPRO [Concomitant]
  4. WARFARIN SODIUM [Concomitant]
  5. FUROSEMIDE [Concomitant]
  6. METOPROLOL TARTRATE [Concomitant]
  7. POTASSIUM CHLORIDE [Concomitant]
  8. ROPINIROLE HYDROCHLORIDE (ROPINIROLE HYDROCHLORIDE) [Concomitant]

REACTIONS (27)
  - ABDOMINAL DISTENSION [None]
  - ABSCESS LIMB [None]
  - ALANINE AMINOTRANSFERASE INCREASED [None]
  - ANXIETY [None]
  - ASPARTATE AMINOTRANSFERASE INCREASED [None]
  - BLOOD ALKALINE PHOSPHATASE INCREASED [None]
  - BLOOD BILIRUBIN INCREASED [None]
  - CELLULITIS [None]
  - COR PULMONALE [None]
  - DECREASED APPETITE [None]
  - DIARRHOEA [None]
  - DRY MOUTH [None]
  - DYSPNOEA EXERTIONAL [None]
  - EOSINOPHIL PERCENTAGE INCREASED [None]
  - FATIGUE [None]
  - FLUSHING [None]
  - HEADACHE [None]
  - HEPATOTOXICITY [None]
  - IMPAIRED HEALING [None]
  - INTERNATIONAL NORMALISED RATIO INCREASED [None]
  - LIP SWELLING [None]
  - OEDEMA [None]
  - PROTHROMBIN TIME PROLONGED [None]
  - RESTLESS LEGS SYNDROME [None]
  - VASCULITIS [None]
  - WEIGHT INCREASED [None]
  - WOUND [None]
